FAERS Safety Report 24681988 (Version 1)
Quarter: 2024Q4

REPORT INFORMATION
  Report Type: Spontaneous
  Country: EG (occurrence: EG)
  Receive Date: 20241130
  Receipt Date: 20241130
  Transmission Date: 20250115
  Serious: Yes (Life-Threatening, Other)
  Sender: SANOFI AVENTIS
  Company Number: EG-SA-2024SA351784

PATIENT
  Age: 60 Year
  Sex: Female
  Weight: 80 kg

DRUGS (2)
  1. AMARYL [Suspect]
     Active Substance: GLIMEPIRIDE
     Indication: Diabetes mellitus
     Dosage: UNK
     Route: 048
     Dates: start: 20241022
  2. AMARYL [Suspect]
     Active Substance: GLIMEPIRIDE
     Indication: Osteoarthritis

REACTIONS (4)
  - Rash [Recovering/Resolving]
  - Epistaxis [Recovering/Resolving]
  - Thrombocytopenia [Recovering/Resolving]
  - Product use in unapproved indication [Unknown]

NARRATIVE: CASE EVENT DATE: 20240101
